FAERS Safety Report 12773580 (Version 1)
Quarter: 2016Q3

REPORT INFORMATION
  Report Type: Report from Study
  Country: MX (occurrence: MX)
  Receive Date: 20160923
  Receipt Date: 20160923
  Transmission Date: 20161109
  Serious: Yes (Disabling)
  Sender: FDA-Public Use
  Company Number: MX-ROCHE-1832794

PATIENT
  Sex: Male

DRUGS (4)
  1. PEGASYS [Suspect]
     Active Substance: PEGINTERFERON ALFA-2A
     Indication: HEPATITIS C
     Dosage: DURING 48 WEEKS
     Route: 058
     Dates: start: 20151010, end: 20160820
  2. FOLIC ACID. [Concomitant]
     Active Substance: FOLIC ACID
     Route: 065
     Dates: start: 20151010
  3. COPEGUS [Suspect]
     Active Substance: RIBAVIRIN
     Indication: HEPATITIS C
     Dosage: DURING 48 WEEKS
     Route: 065
     Dates: start: 20151010, end: 20160820
  4. DANAZOL. [Concomitant]
     Active Substance: DANAZOL
     Route: 065
     Dates: start: 20151010

REACTIONS (3)
  - Pyrexia [Recovering/Resolving]
  - Decreased immune responsiveness [Recovering/Resolving]
  - Headache [Recovering/Resolving]
